FAERS Safety Report 10145626 (Version 1)
Quarter: 2014Q2

REPORT INFORMATION
  Report Type: Spontaneous
  Country: US (occurrence: US)
  Receive Date: 20140501
  Receipt Date: 20140501
  Transmission Date: 20141212
  Serious: No
  Sender: FDA-Public Use
  Company Number: US-TEVA-478742USA

PATIENT
  Age: 53 Year
  Sex: Female

DRUGS (1)
  1. COPAXONE [Suspect]
     Indication: MULTIPLE SCLEROSIS
     Dates: start: 20020716

REACTIONS (5)
  - Fall [Unknown]
  - Therapeutic procedure [Unknown]
  - Pain [Unknown]
  - Vomiting [Unknown]
  - Headache [Unknown]
